FAERS Safety Report 10199835 (Version 1)
Quarter: 2014Q2

REPORT INFORMATION
  Report Type: Spontaneous
  Country: US (occurrence: US)
  Receive Date: 20140527
  Receipt Date: 20140527
  Transmission Date: 20141212
  Serious: No
  Sender: FDA-Public Use
  Company Number: US-NOVEN-14US008995

PATIENT
  Age: 11 Year
  Sex: Female

DRUGS (5)
  1. DAYTRANA [Suspect]
     Indication: ATTENTION DEFICIT/HYPERACTIVITY DISORDER
     Dosage: 15 MG, UNK
     Route: 062
     Dates: start: 201309
  2. DAYTRANA [Suspect]
     Dosage: 20 MG, UNK
     Route: 062
  3. DAYTRANA [Suspect]
     Dosage: 30 MG, UNK
     Route: 062
  4. DAYTRANA [Suspect]
     Dosage: 15 MG, UNK
     Route: 062
     Dates: start: 2012
  5. INTUNIV [Concomitant]
     Indication: ATTENTION DEFICIT/HYPERACTIVITY DISORDER
     Dosage: 2 MG, EVENING
     Route: 048

REACTIONS (6)
  - Chest pain [Recovered/Resolved]
  - Scoliosis [Not Recovered/Not Resolved]
  - Pallor [Recovered/Resolved]
  - Back pain [Recovered/Resolved]
  - Palpitations [Recovered/Resolved]
  - Drug dose omission [Recovered/Resolved]
